FAERS Safety Report 25752990 (Version 4)
Quarter: 2025Q4

REPORT INFORMATION
  Report Type: Spontaneous
  Country: JP (occurrence: JP)
  Receive Date: 20250902
  Receipt Date: 20251121
  Transmission Date: 20260117
  Serious: Yes (Death, Life-Threatening, Hospitalization, Other)
  Sender: ASTELLAS
  Company Number: JP-ASTELLAS-2025-AER-010043

PATIENT
  Age: 76 Year
  Sex: Male
  Weight: 98 kg

DRUGS (150)
  1. PADCEV [Suspect]
     Active Substance: ENFORTUMAB VEDOTIN-EJFV
     Indication: Malignant neoplasm of renal pelvis
     Dosage: ADMINISTRATED ON DAY 1, 8, 15
     Route: 042
     Dates: start: 20250122, end: 20250205
  2. DEXAMETHASONE SODIUM PHOSPHATE [Concomitant]
     Active Substance: DEXAMETHASONE SODIUM PHOSPHATE
     Indication: Product used for unknown indication
     Route: 065
  3. INSULIN NOS [Concomitant]
     Active Substance: INSULIN NOS
     Indication: Hyperglycaemia
     Route: 065
     Dates: start: 20250214
  4. Solu-Medrol for Injection 1000mg, 1 g [Concomitant]
     Indication: Toxic epidermal necrolysis
     Dosage: 1 VIAL, ONCE DAILY
     Route: 042
     Dates: start: 20250214, end: 20250216
  5. Solu-Medrol for Injection 1000mg, 1 g [Concomitant]
     Indication: Febrile neutropenia
  6. ALBUMIN HUMAN [Concomitant]
     Active Substance: ALBUMIN HUMAN
     Indication: Product used for unknown indication
     Route: 065
     Dates: start: 20250217, end: 20250219
  7. LASIX [Concomitant]
     Active Substance: FUROSEMIDE
     Indication: Product used for unknown indication
     Route: 065
     Dates: start: 20250217, end: 20250219
  8. Normal Saline Injection Syringe ^Otsuka^ 10 mL [Concomitant]
     Indication: Product used for unknown indication
     Dosage: 1 SYRINGE, ONCE DAILY
     Route: 065
     Dates: start: 20250214, end: 20250218
  9. Normal Saline Injection Syringe ^Otsuka^ 10 mL [Concomitant]
     Dosage: 1 SYRINGE, ONCE DAILY
     Route: 065
     Dates: start: 20250220, end: 20250226
  10. Normal Saline Injection Syringe ^Otsuka^ 10 mL [Concomitant]
     Dosage: 1 SYRINGE, ONCE DAILY
     Route: 065
     Dates: start: 20250219, end: 20250219
  11. Normal Saline Solution(Terumo) 500ml [Concomitant]
     Indication: Product used for unknown indication
     Dosage: 1 BAG, TWICE DAILY
     Route: 042
     Dates: start: 20250214, end: 20250214
  12. Normal Saline Solution(Terumo) 500ml [Concomitant]
     Dosage: 1 BAG, ONCE DAILY
     Route: 042
     Dates: start: 20250214, end: 20250214
  13. Normal Saline Solution(Terumo) 500ml [Concomitant]
     Dosage: 1 BAG, ONCE DAILY OVER 10 HOURS
     Route: 042
     Dates: start: 20250214, end: 20250214
  14. Normal Saline Solution(Terumo) 500ml [Concomitant]
     Dosage: 1 BAG, ONCE DAILY
     Route: 042
     Dates: start: 20250215, end: 20250216
  15. Normal Saline Solution(Terumo) 500ml [Concomitant]
     Dosage: 1 BAG, ONCE DAILY
     Route: 042
     Dates: start: 20250218, end: 20250218
  16. Normal Saline Solution(Terumo) 500ml [Concomitant]
     Dosage: 1 BAG, ONCE DAILY
     Route: 042
     Dates: start: 20250220, end: 20250220
  17. Normal Saline Solution(Terumo) 500ml [Concomitant]
     Dosage: 1 BAG, ONCE DAILY
     Route: 042
     Dates: start: 20250222, end: 20250222
  18. Normal Saline Solution(Terumo) 500ml [Concomitant]
     Dosage: 1 BAG, ONCE DAILY
     Route: 042
     Dates: start: 20250224, end: 20250224
  19. Normal Saline Solution(Terumo) 500ml [Concomitant]
     Dosage: 1 BAG, ONCE DAILY
     Route: 042
     Dates: start: 20250226, end: 20250226
  20. KCL Injection 20mEq Kit ^Terumo^, 1 mole, 20 mL [Concomitant]
     Indication: Product used for unknown indication
     Dosage: 1 KIT, TWICE DAILY
     Route: 042
     Dates: start: 20250214, end: 20250214
  21. KCL Injection 20mEq Kit ^Terumo^, 1 mole, 20 mL [Concomitant]
     Dosage: 0.5 KIT, TWICE DAILY
     Route: 042
     Dates: start: 20250214, end: 20250216
  22. KCL Injection 20mEq Kit ^Terumo^, 1 mole, 20 mL [Concomitant]
     Dosage: 0.5 KIT, TWICE DAILY
     Route: 042
     Dates: start: 20250215, end: 20250215
  23. KCL Injection 20mEq Kit ^Terumo^, 1 mole, 20 mL [Concomitant]
     Dosage: 3 KITS, ONCE DAILY
     Route: 042
     Dates: start: 20250219, end: 20250221
  24. KCL Injection 20mEq Kit ^Terumo^, 1 mole, 20 mL [Concomitant]
     Dosage: 3 KITS, ONCE DAILY
     Route: 042
     Dates: start: 20250223, end: 20250226
  25. Cefepime Hydrochloride for Injection ^Sandoz^ (CFPM) [Concomitant]
     Indication: Febrile neutropenia
     Route: 042
     Dates: start: 20250214, end: 20250219
  26. Otsuka Normal Saline Injection 100mL [Concomitant]
     Indication: Product used for unknown indication
     Dosage: 1 VIAL, TWICE DAILY
     Route: 042
     Dates: start: 20250214, end: 20250219
  27. Otsuka Normal Saline Injection 100mL [Concomitant]
     Dosage: 1 VIAL, ONCE DAILY
     Route: 042
     Dates: start: 20250214, end: 20250216
  28. Otsuka Normal Saline Injection 100mL [Concomitant]
     Dosage: 1 VIAL, ONCE DAILY
     Route: 042
     Dates: start: 20250217, end: 20250219
  29. Otsuka Normal Saline Injection 100mL [Concomitant]
     Route: 042
     Dates: start: 20250218, end: 20250219
  30. Otsuka Normal Saline Injection 100mL [Concomitant]
     Dosage: 1 VIAL, TWICE DAILY
     Route: 042
     Dates: start: 20250220, end: 20250220
  31. Otsuka Normal Saline Injection 100mL [Concomitant]
     Dosage: 1 VIAL, ONCE DAILY
     Route: 042
     Dates: start: 20250220, end: 20250226
  32. Otsuka Normal Saline Injection 100mL [Concomitant]
     Route: 042
     Dates: start: 20250220, end: 20250220
  33. Otsuka Normal Saline Injection 100mL [Concomitant]
     Route: 042
     Dates: start: 20250220, end: 20250220
  34. Otsuka Normal Saline Injection 100mL [Concomitant]
     Dosage: 99 ML, FOUR TIMES DAILY (3 TIMES)
     Route: 042
     Dates: start: 20250221, end: 20250221
  35. Otsuka Normal Saline Injection 100mL [Concomitant]
     Dosage: 1 VIAL, ONCE DAILY
     Route: 042
     Dates: start: 20250221, end: 20250226
  36. Otsuka Normal Saline Injection 100mL [Concomitant]
     Dosage: 1 VIAL, TWICE DAILY
     Route: 042
     Dates: start: 20250226, end: 20250226
  37. Otsuka Normal Saline Injection 100mL [Concomitant]
     Dosage: 99 ML, SIX TIMES DAILY (3 TIMES)
     Route: 042
     Dates: start: 20250222, end: 20250222
  38. Otsuka Normal Saline Injection 100mL [Concomitant]
     Dosage: 99 ML, SIX TIMES DAILY (TWICE)
     Route: 042
     Dates: start: 20250223, end: 20250224
  39. Otsuka Normal Saline Injection 100mL [Concomitant]
     Dosage: 99 ML, SIX TIMES DAILY (3 TIMES)
     Route: 042
     Dates: start: 20250225, end: 20250226
  40. Otsuka Normal Saline Injection, 20mL [Concomitant]
     Indication: Product used for unknown indication
     Route: 042
     Dates: start: 20250214, end: 20250216
  41. Otsuka Normal Saline Injection, 20mL [Concomitant]
     Route: 042
     Dates: start: 20250217, end: 20250218
  42. Otsuka Normal Saline Injection, 20mL [Concomitant]
     Route: 042
     Dates: start: 20250226, end: 20250226
  43. Otsuka Normal Saline Injection, 20mL [Concomitant]
     Route: 042
     Dates: start: 20250216, end: 20250216
  44. Otsuka Normal Saline Injection, 20mL [Concomitant]
     Dosage: 1 A, TWICE DAILY
     Route: 042
     Dates: start: 20250215, end: 20250219
  45. Otsuka Normal Saline Injection, 20mL [Concomitant]
     Dosage: 20 ML, THREE TIMES DAILY (TWICE)
     Route: 042
     Dates: start: 20250217, end: 20250217
  46. Otsuka Normal Saline Injection, 20mL [Concomitant]
     Route: 042
     Dates: start: 20250218, end: 20250218
  47. Otsuka Normal Saline Injection, 20mL [Concomitant]
     Dosage: 1 A, ONCE DAILY
     Route: 042
     Dates: start: 20250218, end: 20250218
  48. Otsuka Normal Saline Injection, 20mL [Concomitant]
     Dosage: 1 A, ONCE DAILY
     Route: 042
     Dates: start: 20250226, end: 20250226
  49. Otsuka Normal Saline Injection, 20mL [Concomitant]
     Dosage: 1 A, TWICE DAILY
     Route: 042
     Dates: start: 20250220, end: 20250226
  50. Heparin Sodium Injection 5000 units/5mL ^Mochida^ [Concomitant]
     Indication: Product used for unknown indication
     Route: 042
     Dates: start: 20250214, end: 20250215
  51. Heparin Sodium Injection 5000 units/5mL ^Mochida^ [Concomitant]
     Route: 042
     Dates: start: 20250218, end: 20250218
  52. Heparin Sodium Injection 5000 units/5mL ^Mochida^ [Concomitant]
     Route: 042
     Dates: start: 20250220, end: 20250220
  53. Heparin Sodium Injection 5000 units/5mL ^Mochida^ [Concomitant]
     Route: 042
     Dates: start: 20250222, end: 20250222
  54. Heparin Sodium Injection 5000 units/5mL ^Mochida^ [Concomitant]
     Route: 042
     Dates: start: 20250224, end: 20250224
  55. Heparin Sodium Injection 5000 units/5mL ^Mochida^ [Concomitant]
     Route: 042
     Dates: start: 20250226, end: 20250226
  56. Filgrastim BS Injection 75ug Syringe ^F^ 0.3mL [Concomitant]
     Indication: Product used for unknown indication
     Dosage: 1 SYRINGE, ONCE DAILY
     Route: 058
     Dates: start: 20250214, end: 20250216
  57. Normal Saline Solution 250mL [Concomitant]
     Indication: Product used for unknown indication
     Dosage: 1 BAG, ONCE DAILY
     Route: 042
     Dates: start: 20250214, end: 20250220
  58. Humulin R Injection 100 units/mL [Concomitant]
     Indication: Hyperglycaemia
     Dosage: 50 UNITS, THREE TIMES DAILY
     Route: 042
     Dates: start: 20250214, end: 20250216
  59. Humulin R Injection 100 units/mL [Concomitant]
     Dosage: 50 UNITS, THREE TIMES DAILY (ONCE)
     Route: 042
     Dates: start: 20250217, end: 20250217
  60. Humulin R Injection 100 units/mL [Concomitant]
     Dosage: 100 UNITS, TWICE DAILY
     Route: 042
     Dates: start: 20250218, end: 20250219
  61. Humulin R Injection 100 units/mL [Concomitant]
     Dosage: 100 UNITS, TWICE DAILY
     Route: 042
     Dates: start: 20250220, end: 20250220
  62. Humulin R Injection 100 units/mL [Concomitant]
     Dosage: 100 UNITS, ONCE DAILY
     Route: 042
     Dates: start: 20250220, end: 20250220
  63. Humulin R Injection 100 units/mL [Concomitant]
     Dosage: 100 UNITS, FOUR TIMES DAILY(3 TIMES)
     Route: 042
     Dates: start: 20250221, end: 20250221
  64. Humulin R Injection 100 units/mL [Concomitant]
     Dosage: 100 UNITS, SIX TIMES DAILY (3 TIMES)
     Route: 042
     Dates: start: 20250222, end: 20250222
  65. Humulin R Injection 100 units/mL [Concomitant]
     Dosage: 100 UNITS, SIX TIMES DAILY (TWICE)
     Route: 042
     Dates: start: 20250223, end: 20250224
  66. Humulin R Injection 100 units/mL [Concomitant]
     Dosage: 100 UNITS, SIX TIMES DAILY (3 TIMES)
     Route: 042
     Dates: start: 20250225, end: 20250226
  67. Normal Saline Solution ?Hikari? 50 mL [Concomitant]
     Indication: Product used for unknown indication
     Route: 042
     Dates: start: 20250214, end: 20250216
  68. Normal Saline Solution ?Hikari? 50 mL [Concomitant]
     Dosage: 49.5 ML, THREE TIMES DAILY(ONCE)
     Route: 042
     Dates: start: 20250217, end: 20250217
  69. Normal Saline Solution ?Hikari? 50 mL [Concomitant]
     Dosage: 1 VIAL, ONCE DAILY
     Route: 042
     Dates: start: 20250214, end: 20250214
  70. Normal Saline Solution ?Hikari? 50 mL [Concomitant]
     Dosage: CONTINUOUS INTRAVENOUS DRIP
     Route: 042
     Dates: start: 20250214, end: 20250214
  71. Normal Saline Solution ?Hikari? 50 mL [Concomitant]
     Dosage: CONTINUOUS INTRAVENOUS DRIP, 45 ML, FOUR TIMES DAILY (3 TIMES)
     Route: 042
     Dates: start: 20250215, end: 20250216
  72. Normal Saline Solution ?Hikari? 50 mL [Concomitant]
     Dosage: CONTINUOUS INTRAVENOUS DRIP, 45 ML, FOUR TIMES DAILY (TWICE)
     Route: 042
     Dates: start: 20250217, end: 20250217
  73. Normal Saline Solution ?Hikari? 50 mL [Concomitant]
     Dosage: CONTINUOUS INTRAVENOUS DRIP, 45 ML, FOUR TIMES DAILY (3 TIMES)
     Route: 042
     Dates: start: 20250218, end: 20250218
  74. Normal Saline Solution ?Hikari? 50 mL [Concomitant]
     Dosage: CONTINUOUS INTRAVENOUS DRIP, 45 ML, FOUR TIMES DAILY (ONCE)
     Route: 042
     Dates: start: 20250219, end: 20250219
  75. Normal Saline Solution ?Hikari? 50 mL [Concomitant]
     Dosage: 1 VIAL, TWICE DAILY
     Route: 042
     Dates: start: 20250218, end: 20250219
  76. Normal Saline Solution ?Hikari? 50 mL [Concomitant]
     Route: 042
     Dates: start: 20250218, end: 20250219
  77. Normal Saline Solution ?Hikari? 50 mL [Concomitant]
     Route: 042
     Dates: start: 20250220, end: 20250225
  78. Normal Saline Solution ?Hikari? 50 mL [Concomitant]
     Dosage: CONTINUOUS INTRAVENOUS DRIP, 45 ML, FOUR TIMES DAILY (3 TIMES)
     Route: 042
     Dates: start: 20250220, end: 20250220
  79. Normal Saline Solution ?Hikari? 50 mL [Concomitant]
     Dosage: CONTINUOUS INTRAVENOUS DRIP, 45 ML, FOUR TIMES DAILY (ONCE)
     Route: 042
     Dates: start: 20250221, end: 20250222
  80. Normal Saline Solution ?Hikari? 50 mL [Concomitant]
     Dosage: CONTINUOUS INTRAVENOUS DRIP, 45 ML, FOUR TIMES DAILY (TWICE)
     Route: 042
     Dates: start: 20250223, end: 20250223
  81. Normal Saline Solution ?Hikari? 50 mL [Concomitant]
     Dosage: CONTINUOUS INTRAVENOUS DRIP, 45 ML, FOUR TIMES DAILY (ONCE)
     Route: 042
     Dates: start: 20250224, end: 20250226
  82. noradrenaline Injection 1 mg, 1mL [Concomitant]
     Indication: Febrile neutropenia
     Dosage: CONTINUOUS INTRAVENOUS DRIP, 5A, FOUR TIMES DAILY
     Route: 042
     Dates: start: 20250214, end: 20250214
  83. noradrenaline Injection 1 mg, 1mL [Concomitant]
     Dosage: CONTINUOUS INTRAVENOUS DRIP, 5A, FOUR TIMES DAILY(3 TIMES)
     Route: 042
     Dates: start: 20250215, end: 20250216
  84. noradrenaline Injection 1 mg, 1mL [Concomitant]
     Dosage: CONTINUOUS INTRAVENOUS DRIP, 5A, FOUR TIMES DAILY(TWICE)
     Route: 042
     Dates: start: 20250217, end: 20250217
  85. noradrenaline Injection 1 mg, 1mL [Concomitant]
     Dosage: CONTINUOUS INTRAVENOUS DRIP, 5A, FOUR TIMES DAILY(3 TIMES)
     Route: 042
     Dates: start: 20250218, end: 20250218
  86. noradrenaline Injection 1 mg, 1mL [Concomitant]
     Dosage: CONTINUOUS INTRAVENOUS DRIP, 5A, FOUR TIMES DAILY(ONCE)
     Route: 042
     Dates: start: 20250219, end: 20250219
  87. noradrenaline Injection 1 mg, 1mL [Concomitant]
     Dosage: CONTINUOUS INTRAVENOUS DRIP, 5A, FOUR TIMES DAILY(3 TIMES)
     Route: 042
     Dates: start: 20250220, end: 20250220
  88. noradrenaline Injection 1 mg, 1mL [Concomitant]
     Dosage: CONTINUOUS INTRAVENOUS DRIP, 5A, FOUR TIMES DAILY(ONCE)
     Route: 042
     Dates: start: 20250221, end: 20250222
  89. noradrenaline Injection 1 mg, 1mL [Concomitant]
     Dosage: CONTINUOUS INTRAVENOUS DRIP, 5A, FOUR TIMES DAILY(TWICE)
     Route: 042
     Dates: start: 20250223, end: 20250223
  90. noradrenaline Injection 1 mg, 1mL [Concomitant]
     Dosage: CONTINUOUS INTRAVENOUS DRIP, 5A, FOUR TIMES DAILY(ONCE)
     Route: 042
     Dates: start: 20250224, end: 20250226
  91. Sodium Phosphate Correction Solution 0.5 mmol/mL, 0.5 mol, 20 mL [Concomitant]
     Indication: Product used for unknown indication
     Dosage: 1 A, ONCE DAILY
     Route: 042
     Dates: start: 20250214, end: 20250214
  92. Sodium Phosphate Correction Solution 0.5 mmol/mL, 0.5 mol, 20 mL [Concomitant]
     Dosage: 3 A, ONCE DAILY
     Route: 042
     Dates: start: 20250214, end: 20250214
  93. Sodium Phosphate Correction Solution 0.5 mmol/mL, 0.5 mol, 20 mL [Concomitant]
     Dosage: 3 A, ONCE DAILY
     Route: 042
     Dates: start: 20250216, end: 20250216
  94. Magnesium Sulfate Correction Solution 1 mEq/mL, 0.5 mol, 20 mL [Concomitant]
     Indication: Product used for unknown indication
     Dosage: 1 A, ONCE DAILY
     Route: 042
     Dates: start: 20250214, end: 20250214
  95. Polaramine Injection 5mg, 1mL [Concomitant]
     Indication: Product used for unknown indication
     Dosage: 1 A, ONCE DAILY
     Route: 042
     Dates: start: 20250214, end: 20250214
  96. Pantol Injection 500mg, 2mL [Concomitant]
     Indication: Product used for unknown indication
     Dosage: 1 A, THREE TIMES DAILY
     Route: 042
     Dates: start: 20250214, end: 20250219
  97. Pantol Injection 500mg, 2mL [Concomitant]
     Dosage: 1 A, THREE TIMES DAILY
     Route: 042
     Dates: start: 20250220, end: 20250221
  98. Solu-Cortef for Injection 100 mg [Concomitant]
     Indication: Febrile neutropenia
     Dosage: 1 VIAL, TWICE DAILY
     Route: 042
     Dates: start: 20250214, end: 20250214
  99. Solacet D Infusion 500 mL (Veen D) [Concomitant]
     Indication: Product used for unknown indication
     Dosage: 1 BAG, THREE TIMES DAILY
     Route: 042
     Dates: start: 20250214, end: 20250214
  100. Solacet D Infusion 500 mL (Veen D) [Concomitant]
     Dosage: 1 BAG, ONCE DAILY
     Route: 042
     Dates: start: 20250215, end: 20250216
  101. Solacet D Infusion 500 mL (Veen D) [Concomitant]
     Dosage: 1 BAG, 6 TIMES DAILY (3 TIMES)
     Route: 042
     Dates: start: 20250215, end: 20250215
  102. Solacet D Infusion 500 mL (Veen D) [Concomitant]
     Dosage: 1 BAG, 6 TIMES DAILY (5 TIMES)
     Route: 042
     Dates: start: 20250216, end: 20250216
  103. Solacet D Infusion 500 mL (Veen D) [Concomitant]
     Dosage: 1 BAG, 6 TIMES DAILY (TWICE)
     Route: 042
     Dates: start: 20250217, end: 20250217
  104. Solacet D Infusion 500 mL (Veen D) [Concomitant]
     Dosage: 1 BAG, 6 TIMES DAILY (4 TIMES)
     Route: 042
     Dates: start: 20250218, end: 20250218
  105. Solacet D Infusion 500 mL (Veen D) [Concomitant]
     Dosage: 1 BAG, 4 TIMES DAILY
     Route: 042
     Dates: start: 20250219, end: 20250219
  106. Solacet D Infusion 500 mL (Veen D) [Concomitant]
     Dosage: 1 BAG, FOUR TIMES DAILY (ONCE)
     Route: 042
     Dates: start: 20250220, end: 20250220
  107. Pitressin Injection 20, 1mL [Concomitant]
     Indication: Product used for unknown indication
     Dosage: 1 A, ONCE DAILY
     Route: 042
     Dates: start: 20250214, end: 20250216
  108. Pitressin Injection 20, 1mL [Concomitant]
     Dosage: 1 A, TWICE DAILY
     Route: 042
     Dates: start: 20250217, end: 20250218
  109. Pitressin Injection 20, 1mL [Concomitant]
     Dosage: 2 A, TWICE DAILY
     Route: 042
     Dates: start: 20250218, end: 20250219
  110. Pitressin Injection 20, 1mL [Concomitant]
     Dosage: 2 A, TWICE DAILY
     Route: 042
     Dates: start: 20250220, end: 20250225
  111. Pitressin Injection 20, 1mL [Concomitant]
     Dosage: 1 A, ONCE DAILY
     Route: 042
     Dates: start: 20250226, end: 20250226
  112. Atarax-P Injection (25mg/mL) 1mL [Concomitant]
     Indication: Product used for unknown indication
     Dosage: 1 A, ONCE DAILY
     Route: 042
     Dates: start: 20250217, end: 20250217
  113. Atarax-P Injection (25mg/mL) 1mL [Concomitant]
     Dosage: 1 A, ONCE DAILY
     Route: 042
     Dates: start: 20250215, end: 20250216
  114. Omeprazole for Injection 20 mg ?Nichi-Iko? (Omebral) [Concomitant]
     Indication: Product used for unknown indication
     Dosage: 1 VIAL, TWICE DAILY
     Route: 042
     Dates: start: 20250215, end: 20250226
  115. MEYLON Injection 8.4% 250 mL [Concomitant]
     Indication: Product used for unknown indication
     Route: 042
     Dates: start: 20250215, end: 20250215
  116. Meilon Injection 8.4%, 20 mL [Concomitant]
     Indication: Product used for unknown indication
     Dosage: 3 A, ONCE DAILY
     Route: 042
     Dates: start: 20250218, end: 20250218
  117. Serenace Injection 5mg 1mL [Concomitant]
     Indication: Product used for unknown indication
     Dosage: 1A, ONCE DAILY
     Route: 042
     Dates: start: 20250216, end: 20250218
  118. Calcicol Injection 8.5%, 10mL [Concomitant]
     Indication: Product used for unknown indication
     Dosage: 2 A, THREE TIMES DAILY(TWICE)
     Route: 042
     Dates: start: 20250217, end: 20250217
  119. Calcicol Injection 8.5%, 10mL [Concomitant]
     Dosage: 2 A, THREE TIMES DAILY
     Route: 042
     Dates: start: 20250218, end: 20250218
  120. Calcicol Injection 8.5%, 10mL [Concomitant]
     Dosage: 2 A, ONCE DAILY
     Route: 042
     Dates: start: 20250216, end: 20250216
  121. Calcicol Injection 8.5%, 10mL [Concomitant]
     Dosage: 1 A, ONCE DAILY
     Route: 042
     Dates: start: 20250218, end: 20250218
  122. Solu-Medrol for Injection 125 mg [Concomitant]
     Indication: Toxic epidermal necrolysis
     Dosage: 1 VIAL, ONCE DAILY
     Route: 042
     Dates: start: 20250217, end: 20250226
  123. Solu-Medrol for Injection 125 mg [Concomitant]
     Indication: Febrile neutropenia
  124. Furosemide Injection 20 mg ?Towa? [Concomitant]
     Indication: Product used for unknown indication
     Dosage: 1 A, TWICE DAILY
     Route: 042
     Dates: start: 20250217, end: 20250217
  125. Furosemide Injection 20 mg ?Towa? [Concomitant]
     Dosage: 3 A, THREE TIMES DAILY (TWICE)
     Route: 042
     Dates: start: 20250218, end: 20250218
  126. Furosemide Injection 20 mg ?Towa? [Concomitant]
     Dosage: 2 A, ONCE DAILY
     Route: 042
     Dates: start: 20250219, end: 20250219
  127. Furosemide Injection 20 mg ?Towa? [Concomitant]
     Dosage: 2 A, TWICE DAILY
     Route: 042
     Dates: start: 20250221, end: 20250222
  128. Furosemide Injection 20 mg ?Towa? [Concomitant]
     Dosage: 1 A, ONCE DAILY
     Route: 042
     Dates: start: 20250220, end: 20250220
  129. Furosemide Injection 20 mg ?Towa? [Concomitant]
     Dosage: 2 A, ONCE DAILY
     Route: 042
     Dates: start: 20250223, end: 20250224
  130. Furosemide Injection 20 mg ?Towa? [Concomitant]
     Dosage: 2 A, ONCE DAILY
     Route: 042
     Dates: start: 20250225, end: 20250226
  131. Alinamin F100 Injection 100 mg, 20 mL [Concomitant]
     Indication: Product used for unknown indication
     Dosage: 1 A, TWICE DAILY
     Route: 042
     Dates: start: 20250218, end: 20250219
  132. Heparin Sodium Lock Solution 100 units/mL Syringe Otsuka 10mL [Concomitant]
     Indication: Product used for unknown indication
     Dosage: 2 SYRINGES, ONCE DAILY
     Route: 042
     Dates: start: 20250219, end: 20250219
  133. Heparin Sodium Lock Solution 100 units/mL Syringe Otsuka 10mL [Concomitant]
     Dosage: 1 SYRINGE, ONCE DAILY
     Route: 042
     Dates: start: 20250220, end: 20250220
  134. HICALIQ RF Infusion 500 mL [Concomitant]
     Indication: Product used for unknown indication
     Dosage: CENTRAL VENOUS INFUSION, 1 BAG, ONCE DAILY
     Route: 042
     Dates: start: 20250219, end: 20250226
  135. KIDMIN Infusion 200 mL [Concomitant]
     Indication: Product used for unknown indication
     Dosage: CENTRAL VENOUS INFUSION, 1 BAG, ONCE DAILY
     Route: 042
     Dates: start: 20250219, end: 20250226
  136. Otsuka MV Injection, 1 vial, 1 ampoule [Concomitant]
     Indication: Product used for unknown indication
     Dosage: CENTRAL VENOUS INFUSION, 1 SET, ONCE DAILY
     Route: 042
     Dates: start: 20250219, end: 20250225
  137. EREJECT Injection Syringe 2 mL [Concomitant]
     Indication: Product used for unknown indication
     Dosage: CENTRAL VENOUS INFUSION,1 SYRINGE, ONCE DAILY
     Route: 042
     Dates: start: 20250224, end: 20250224
  138. EREJECT Injection Syringe 2 mL [Concomitant]
     Dosage: CENTRAL VENOUS INFUSION,1 SYRINGE, ONCE DAILY
     Route: 042
     Dates: start: 20250221, end: 20250221
  139. Soldem 3A Infusion 500 mL (Solita T3) [Concomitant]
     Indication: Product used for unknown indication
     Dosage: 1 BAG, TWICE DAILY (ONCE)
     Route: 042
     Dates: start: 20250222, end: 20250222
  140. Soldem 3A Infusion 500 mL (Solita T3) [Concomitant]
     Dosage: 1 BAG, TWICE DAILY
     Route: 042
     Dates: start: 20250223, end: 20250225
  141. Soldem 3A Infusion 500 mL (Solita T3) [Concomitant]
     Dosage: 1 BAG, TWICE DAILY (ONCE)
     Route: 042
     Dates: start: 20250226, end: 20250226
  142. Soldem 3A Infusion 500 mL (Solita T3) [Concomitant]
     Dosage: 1 BAG, TWICE DAILY
     Route: 042
     Dates: start: 20250220, end: 20250221
  143. Acelio Injection 1000mg Bag 1000 mg/100 mL [Concomitant]
     Indication: Product used for unknown indication
     Dosage: 1 BAG, ONCE DAILY
     Route: 042
     Dates: start: 20250221, end: 20250221
  144. 5% Glucose Injection 500 mL [Concomitant]
     Indication: Product used for unknown indication
     Dosage: 1 BAG, TWICE DAILY
     Route: 042
     Dates: start: 20250221, end: 20250226
  145. Tazobactam/Piperacillin for Intravenous Injection 4.5 ?Meiji? 4.5 g (T [Concomitant]
     Indication: Product used for unknown indication
     Dosage: 1 VIAL, TWICE DAILY
     Route: 042
     Dates: start: 20250221, end: 20250225
  146. Otsuka Normal Saline Injection 2-Port 100 mL [Concomitant]
     Indication: Product used for unknown indication
     Dosage: 1 KIT, TWICE DAILY
     Route: 042
     Dates: start: 20250221, end: 20250225
  147. Intralipos Infusion 20%, 100 mL [Concomitant]
     Indication: Product used for unknown indication
     Dosage: 1 BAG, ONCE DAILY
     Route: 042
     Dates: start: 20250223, end: 20250226
  148. Teicoplanin for Intravenous Drip Infusion 400 mg ?Nichi-Iko? [Concomitant]
     Indication: Product used for unknown indication
     Dosage: 2 VIALS, TWICE DAILY
     Route: 042
     Dates: start: 20250226, end: 20250226
  149. Teicoplanin for Intravenous Drip Infusion 200 mg ?Nichi-Iko? [Concomitant]
     Indication: Product used for unknown indication
     Dosage: 0.5 VIAL, TWICE DAILY
     Route: 042
     Dates: start: 20250226, end: 20250226
  150. CYANOCOBALAMIN\PYRIDOXINE HYDROCHLORIDE\THIAMINE [Concomitant]
     Active Substance: CYANOCOBALAMIN\PYRIDOXINE HYDROCHLORIDE\THIAMINE
     Indication: Product used for unknown indication
     Dosage: CENTRAL VENOUS INFUSION, 1 VIAL, ONCE DAILY
     Route: 042
     Dates: start: 20250226, end: 20250226

REACTIONS (9)
  - Multiple organ dysfunction syndrome [Fatal]
  - Toxic epidermal necrolysis [Fatal]
  - Febrile neutropenia [Fatal]
  - Hyperglycaemia [Fatal]
  - Septic shock [Fatal]
  - Disseminated intravascular coagulation [Unknown]
  - Altered state of consciousness [Unknown]
  - Urine output decreased [Recovering/Resolving]
  - Blood creatinine increased [Unknown]

NARRATIVE: CASE EVENT DATE: 20250209
